FAERS Safety Report 8326646-6 (Version None)
Quarter: 2012Q2

REPORT INFORMATION
  Report Type: 
  Country: None (occurrence: None)
  Receive Date: 20120501
  Receipt Date: 20120419
  Transmission Date: 20120825
  Serious: Yes (Life-Threatening, Hospitalization)
  Sender: FDA-Public Use
  Company Number: CN-PFIZER INC-2012104763

PATIENT
  Age: 25 Year
  Sex: Male

DRUGS (3)
  1. ACETAMINOPHEN [Suspect]
     Dosage: UNK
     Dates: start: 20120401
  2. TYLENOL COLD [Suspect]
     Indication: NASOPHARYNGITIS
     Dosage: TWICE A DAY
     Route: 048
     Dates: start: 20120401
  3. IBUPROFEN [Suspect]
     Dosage: UNK
     Route: 048
     Dates: start: 20120401

REACTIONS (5)
  - HEPATIC FAILURE [None]
  - HEPATORENAL SYNDROME [None]
  - LUNG INFECTION [None]
  - TOXICITY TO VARIOUS AGENTS [None]
  - COMA [None]
